FAERS Safety Report 21279488 (Version 1)
Quarter: 2022Q3

REPORT INFORMATION
  Report Type: Spontaneous
  Country: US (occurrence: US)
  Receive Date: 20220901
  Receipt Date: 20220901
  Transmission Date: 20221027
  Serious: No
  Sender: FDA-Public Use
  Company Number: US-BSC-2022000089

PATIENT
  Sex: Female

DRUGS (1)
  1. VARITHENA [Suspect]
     Active Substance: POLIDOCANOL
     Indication: Product used for unknown indication
     Dates: start: 202205, end: 2022

REACTIONS (3)
  - Hypersensitivity [Not Recovered/Not Resolved]
  - Thrombosis [Unknown]
  - Administration site discolouration [Unknown]

NARRATIVE: CASE EVENT DATE: 20220101
